FAERS Safety Report 5046231-1 (Version None)
Quarter: 2006Q2

REPORT INFORMATION
  Report Type: 
  Country: None (occurrence: None)
  Receive Date: 20060629
  Receipt Date: 20060626
  Transmission Date: 20061013
  Serious: Yes (Other)
  Sender: FDA-Public Use
  Company Number: 007837

PATIENT
  Sex: Female

DRUGS (5)
  1. MEDROXYPROGESTERONE ACETATE [Suspect]
     Dosage: ORAL
     Route: 048
     Dates: start: 19980101, end: 20020601
  2. PREMARIN [Suspect]
     Dosage: ORAL
     Route: 048
     Dates: start: 19980101, end: 20020601
  3. CYCRIN [Suspect]
     Dosage: ORAL
     Route: 048
     Dates: start: 19980101, end: 20020601
  4. PROVERA [Suspect]
     Dosage: ORAL
     Route: 048
     Dates: start: 19980101, end: 20020601
  5. PREMPRO [Suspect]
     Dosage: ORAL
     Route: 048
     Dates: start: 19980101, end: 20020601

REACTIONS (1)
  - BREAST CANCER FEMALE [None]
